FAERS Safety Report 10957742 (Version 1)
Quarter: 2015Q1

REPORT INFORMATION
  Report Type: Spontaneous
  Country: US (occurrence: US)
  Receive Date: 20150326
  Receipt Date: 20150326
  Transmission Date: 20150721
  Serious: Yes (Death)
  Sender: FDA-Public Use
  Company Number: US-CIPLA LTD.-2015US02419

PATIENT

DRUGS (4)
  1. COCAINE [Suspect]
     Active Substance: COCAINE
  2. HEROIN [Suspect]
     Active Substance: DIACETYLMORPHINE
  3. CITALOPRAM [Suspect]
     Active Substance: CITALOPRAM HYDROBROMIDE
  4. QUININE [Suspect]
     Active Substance: QUININE

REACTIONS (1)
  - Drug abuse [Fatal]
